FAERS Safety Report 8443488-1 (Version None)
Quarter: 2012Q2

REPORT INFORMATION
  Report Type: 
  Country: None (occurrence: None)
  Receive Date: 20120618
  Receipt Date: 20120607
  Transmission Date: 20120825
  Serious: Yes (Hospitalization, Other)
  Sender: FDA-Public Use
  Company Number: CA-JNJFOC-20120603881

PATIENT
  Sex: Male
  Weight: 77 kg

DRUGS (6)
  1. PREDNISONE [Concomitant]
     Route: 065
  2. REMICADE [Suspect]
     Indication: ANKYLOSING SPONDYLITIS
     Route: 042
  3. RISEDRONATE SODIUM [Concomitant]
     Route: 065
  4. CALCIUM AND VITAMIN D [Concomitant]
     Route: 065
  5. PANTOPRAZOLE [Concomitant]
     Route: 065
  6. REMICADE [Suspect]
     Indication: CROHN'S DISEASE
     Route: 042

REACTIONS (2)
  - PNEUMONIA [None]
  - BACTERAEMIA [None]
